FAERS Safety Report 15087807 (Version 1)
Quarter: 2018Q2

REPORT INFORMATION
  Report Type: Other
  Country: IT (occurrence: IT)
  Receive Date: 20180629
  Receipt Date: 20180629
  Transmission Date: 20180711
  Serious: Yes (Hospitalization, Other)
  Sender: FDA-Public Use
  Company Number: IT-ORCHID HEALTHCARE-2051094

PATIENT
  Age: 70 Year
  Sex: Male

DRUGS (1)
  1. PANTOPRAZOLE SODIUM. [Suspect]
     Active Substance: PANTOPRAZOLE SODIUM
     Route: 065

REACTIONS (1)
  - Colitis microscopic [Recovered/Resolved]
